FAERS Safety Report 17166363 (Version 2)
Quarter: 2019Q4

REPORT INFORMATION
  Report Type: Spontaneous
  Country: US (occurrence: US)
  Receive Date: 20191217
  Receipt Date: 20191227
  Transmission Date: 20200122
  Serious: Yes (Hospitalization, Other)
  Sender: FDA-Public Use
  Company Number: US-ACTELION-A-NJ2019-199423

PATIENT
  Age: 54 Year
  Sex: Female

DRUGS (5)
  1. UPTRAVI [Suspect]
     Active Substance: SELEXIPAG
     Indication: PULMONARY ARTERIAL HYPERTENSION
     Dosage: 800 MCG, BID
     Route: 048
  2. PREDNISONE. [Suspect]
     Active Substance: PREDNISONE
     Indication: PRODUCT USED FOR UNKNOWN INDICATION
     Dosage: UNK
     Route: 065
  3. ELIQUIS [Concomitant]
     Active Substance: APIXABAN
  4. ADEMPAS [Concomitant]
     Active Substance: RIOCIGUAT
  5. AMBRISENTAN [Concomitant]
     Active Substance: AMBRISENTAN

REACTIONS (6)
  - Haemoglobin decreased [Unknown]
  - Transfusion [Unknown]
  - Anaemia [Unknown]
  - Haematocrit decreased [Unknown]
  - Pneumonia [Unknown]
  - Chronic disease [Unknown]

NARRATIVE: CASE EVENT DATE: 20190917
